FAERS Safety Report 6838993-5 (Version None)
Quarter: 2010Q3

REPORT INFORMATION
  Report Type: 
  Country: None (occurrence: None)
  Receive Date: 20100713
  Receipt Date: 20081201
  Transmission Date: 20110219
  Serious: Yes (Disabling, Other)
  Sender: FDA-Public Use
  Company Number: US-PFIZER INC-2007040070

PATIENT
  Sex: Female

DRUGS (2)
  1. CHANTIX [Suspect]
     Dosage: UNK
  2. COUMADIN [Concomitant]

REACTIONS (4)
  - ARTHROPATHY [None]
  - BLOOD TEST ABNORMAL [None]
  - DRY MOUTH [None]
  - KNEE OPERATION [None]
